FAERS Safety Report 5375965-4 (Version None)
Quarter: 2007Q3

REPORT INFORMATION
  Report Type: 
  Country: None (occurrence: None)
  Receive Date: 20070702
  Receipt Date: 20070628
  Transmission Date: 20080115
  Serious: Yes (Death, Hospitalization)
  Sender: FDA-Public Use
  Company Number: DE-JNJFOC-20070506316

PATIENT
  Sex: Male
  Weight: 90 kg

DRUGS (5)
  1. RISPERDAL [Suspect]
     Indication: DEMENTIA
     Route: 048
  2. RISPERDAL [Suspect]
     Indication: ABNORMAL BEHAVIOUR
     Route: 048
  3. DIPIPERON [Suspect]
     Indication: RESTLESSNESS
     Dosage: 0-0-1
     Route: 048
  4. MIRTAZAPINE [Suspect]
     Indication: DEPRESSION
     Route: 048
  5. ARICEPT [Concomitant]
     Indication: DEMENTIA
     Route: 048

REACTIONS (2)
  - FALL [None]
  - FEMORAL NECK FRACTURE [None]
